FAERS Safety Report 24378141 (Version 1)
Quarter: 2024Q3

REPORT INFORMATION
  Report Type: Spontaneous
  Country: FR (occurrence: FR)
  Receive Date: 20240930
  Receipt Date: 20240930
  Transmission Date: 20241017
  Serious: Yes (Death, Hospitalization, Other)
  Sender: SANOFI AVENTIS
  Company Number: None

PATIENT
  Age: 69 Year
  Sex: Male
  Weight: 109 kg

DRUGS (19)
  1. PREDNISONE [Suspect]
     Active Substance: PREDNISONE
     Indication: Gout
     Dosage: 30 MG, QD
     Route: 048
     Dates: start: 20180315, end: 20180405
  2. LOVENOX [Suspect]
     Active Substance: ENOXAPARIN SODIUM
     Indication: Anticoagulant therapy
     Dosage: 4000 IU, QD
     Route: 058
     Dates: start: 20180315, end: 20180405
  3. CLOXACILLIN [Suspect]
     Active Substance: CLOXACILLIN
     Indication: Pneumonia
     Dosage: 1 G, POWDER FOR SOLUTION FOR INJECTION (IV)
     Route: 042
     Dates: start: 20180607, end: 20180614
  4. ARTOTEC [Suspect]
     Active Substance: DICLOFENAC SODIUM\MISOPROSTOL
     Indication: Arthralgia
     Dosage: 75 MG/0.2 MG, GASTRO-RESISTANT TABLETGASTRO-RESISTANT TABLET
     Route: 048
     Dates: start: 20180315
  5. KARDEGIC [Suspect]
     Active Substance: ASPIRIN DL-LYSINE
     Indication: Platelet aggregation inhibition
     Dosage: (0-1-0)
     Route: 048
     Dates: start: 20180315, end: 20180405
  6. NIACINAMIDE [Concomitant]
     Active Substance: NIACINAMIDE
     Dosage: 500 MG/5 ML, IV: 1-0-1
     Route: 042
  7. NEFOPAM HYDROCHLORIDE [Concomitant]
     Active Substance: NEFOPAM HYDROCHLORIDE
     Dosage: 20 MG/2 ML,   IV: 1-1-1
     Route: 042
  8. MORPHINE SULFATE [Concomitant]
     Active Substance: MORPHINE SULFATE
     Dosage: 10 MG, SUSTAINED-RELEASE MICROGRANULES IN CAPSULES
  9. ASCORBIC ACID [Concomitant]
     Active Substance: ASCORBIC ACID
     Dosage: 1 G/5 ML, 1-0-0
     Route: 042
  10. FOLIC ACID [Concomitant]
     Active Substance: FOLIC ACID
     Dosage: CCD 5 MG, TABLET, 0-1-0
  11. RACECADOTRIL [Concomitant]
     Active Substance: RACECADOTRIL
     Dosage: 100 MG, CAPSULE
     Route: 042
     Dates: start: 20180601, end: 20180613
  12. PANTOPRAZOLE SODIUM [Concomitant]
     Active Substance: PANTOPRAZOLE SODIUM
     Dosage: 40 MG, QD
     Route: 042
  13. THIAMINE HYDROCHLORIDE [Concomitant]
     Active Substance: THIAMINE HYDROCHLORIDE
     Dosage: 100 MG/2 ML,1-0-1
     Route: 042
  14. PYRIDOXINE HYDROCHLORIDE [Concomitant]
     Active Substance: PYRIDOXINE HYDROCHLORIDE
     Dosage: 250 MG/5 ML, IV: 1-0-1
     Route: 042
  15. AMLODIPINE [Concomitant]
     Active Substance: AMLODIPINE BESYLATE
     Dosage: UNK
  16. COLCHICINE [Concomitant]
     Active Substance: COLCHICINE
     Indication: Pancytopenia
     Dosage: 0-0,5-0
     Route: 048
  17. ACETAMINOPHEN [Concomitant]
     Active Substance: ACETAMINOPHEN
     Dosage: PO: 2-2-2
     Route: 048
  18. FOLIC ACID [Concomitant]
     Active Substance: FOLIC ACID
     Dosage: 1-0-0
     Route: 048
  19. ALFUZOSIN [Concomitant]
     Active Substance: ALFUZOSIN
     Dosage: SUSTAINED RELEASE , 0-0-1
     Route: 048

REACTIONS (6)
  - Clostridium difficile infection [Fatal]
  - General physical health deterioration [Fatal]
  - Gastrointestinal haemorrhage [Recovered/Resolved]
  - Peptic ulcer [Recovered/Resolved]
  - Pneumonia [Unknown]
  - Febrile neutropenia [Unknown]

NARRATIVE: CASE EVENT DATE: 20180402
